FAERS Safety Report 8022321-6 (Version None)
Quarter: 2012Q1

REPORT INFORMATION
  Report Type: 
  Country: None (occurrence: None)
  Receive Date: 20120104
  Receipt Date: 20111227
  Transmission Date: 20120608
  Serious: Yes (Hospitalization, Other)
  Sender: FDA-Public Use
  Company Number: US-ASTRAZENECA-2011SE74070

PATIENT
  Age: 50 Year
  Sex: Male

DRUGS (2)
  1. SYMBICORT [Concomitant]
  2. NEXIUM [Suspect]
     Route: 048

REACTIONS (2)
  - ROTATOR CUFF SYNDROME [None]
  - ACCIDENT AT WORK [None]
